FAERS Safety Report 9076962 (Version 1)
Quarter: 2013Q1

REPORT INFORMATION
  Report Type: Report from Study
  Country: US (occurrence: US)
  Receive Date: 20130129
  Receipt Date: 20130129
  Transmission Date: 20140127
  Serious: No
  Sender: FDA-Public Use
  Company Number: US-ABBOTT-12P-163-0911761-00

PATIENT
  Age: 68 Year
  Sex: Male

DRUGS (5)
  1. HUMIRA 40 MG/0.8 ML PEN [Suspect]
     Indication: PSORIATIC ARTHROPATHY
  2. METOPROLOL ER [Concomitant]
     Indication: HYPERTENSION
     Dosage: DAILY
  3. OMEPRAZOLE [Concomitant]
     Indication: DYSPEPSIA
     Dosage: DAILY
  4. BABY ASPIRIN [Concomitant]
     Indication: PRODUCT USED FOR UNKNOWN INDICATION
     Dosage: DAILY
  5. TYLENOL [Concomitant]
     Indication: PAIN
     Dosage: AS NEEDED

REACTIONS (10)
  - Atrial fibrillation [Not Recovered/Not Resolved]
  - Incorrect storage of drug [Unknown]
  - Poor quality drug administered [Unknown]
  - Pain in extremity [Unknown]
  - Local swelling [Unknown]
  - Joint swelling [Unknown]
  - Oedema peripheral [Unknown]
  - Gouty arthritis [Unknown]
  - Oedema peripheral [Unknown]
  - Infection [Unknown]
